FAERS Safety Report 6238511-9 (Version None)
Quarter: 2009Q2

REPORT INFORMATION
  Report Type: 
  Country: None (occurrence: None)
  Receive Date: 20090622
  Receipt Date: 20090615
  Transmission Date: 20091009
  Serious: Yes (Other)
  Sender: FDA-Public Use
  Company Number: US-ELI_LILLY_AND_COMPANY-US200905005332

PATIENT
  Sex: Male

DRUGS (3)
  1. HUMALOG [Suspect]
     Indication: TYPE 1 DIABETES MELLITUS
     Dosage: 12 U, AS NEEDED
  2. LANTUS [Concomitant]
     Indication: TYPE 1 DIABETES MELLITUS
     Dosage: 6 U, EACH MORNING
  3. LANTUS [Concomitant]
     Dosage: 10 U, EACH EVENING

REACTIONS (6)
  - CARDIAC DISORDER [None]
  - DRUG DOSE OMISSION [None]
  - FEAR [None]
  - GASTROINTESTINAL DISORDER [None]
  - RENAL DISORDER [None]
  - STENT PLACEMENT [None]
